FAERS Safety Report 6336414-2 (Version None)
Quarter: 2009Q3

REPORT INFORMATION
  Report Type: 
  Country: None (occurrence: None)
  Receive Date: 20090828
  Receipt Date: 20090515
  Transmission Date: 20100115
  Serious: Yes (Hospitalization)
  Sender: FDA-Public Use
  Company Number: IND1-ES-2009-0023

PATIENT
  Sex: Male

DRUGS (4)
  1. INDOMETHACIN [Suspect]
     Indication: BONE PAIN
     Dosage: ** (25 MG) ORAL
     Route: 048
     Dates: start: 20080717, end: 20080721
  2. HYDRALAZINE (HYDRALAZINE) (TABLETS) (HYDRALAZINE) [Concomitant]
  3. ADIRO (ACETYLSALICYLIC ACID) (TABLETS) (ACETYLSALICYLIC ACID) [Concomitant]
  4. ZYLORIC (ALLOPURINOL) (TABLETS) (ALLOPURINOL) [Concomitant]

REACTIONS (4)
  - ASCITES [None]
  - CARDIAC FAILURE [None]
  - HEPATOMEGALY [None]
  - RENAL FAILURE ACUTE [None]
